FAERS Safety Report 24919600 (Version 1)
Quarter: 2025Q1

REPORT INFORMATION
  Report Type: Report from Study
  Country: US (occurrence: US)
  Receive Date: 20250204
  Receipt Date: 20250204
  Transmission Date: 20250408
  Serious: No
  Sender: EXELIXIS
  Company Number: US-EXELIXIS-CABO-23071768

PATIENT
  Sex: Male

DRUGS (20)
  1. CABOMETYX [Suspect]
     Active Substance: CABOZANTINIB S-MALATE
     Indication: Renal cancer
     Dosage: 20 MG, QD
     Route: 048
     Dates: start: 20230824
  2. ALLOPURINOL [Concomitant]
     Active Substance: ALLOPURINOL
  3. AMLODIPINE [Concomitant]
     Active Substance: AMLODIPINE BESYLATE
  4. ATORVASTATIN [Concomitant]
     Active Substance: ATORVASTATIN
  5. BENAZEPRIL [Concomitant]
     Active Substance: BENAZEPRIL HYDROCHLORIDE
  6. ACETAMINOPHEN\BUTALBITAL [Concomitant]
     Active Substance: ACETAMINOPHEN\BUTALBITAL
  7. CYCLOBENZAPRINE [Concomitant]
     Active Substance: CYCLOBENZAPRINE
  8. ATROPINE\DIPHENOXYLATE [Concomitant]
     Active Substance: ATROPINE\DIPHENOXYLATE
  9. GLIMEPIRIDE [Concomitant]
     Active Substance: GLIMEPIRIDE
  10. IMODIUM A-D [Concomitant]
     Active Substance: LOPERAMIDE HYDROCHLORIDE
  11. METOPROLOL SUCCINATE [Concomitant]
     Active Substance: METOPROLOL SUCCINATE
  12. METRONIDAZOLE [Concomitant]
     Active Substance: METRONIDAZOLE
  13. OMEPRAZOLE [Concomitant]
     Active Substance: OMEPRAZOLE
  14. PIOGLITAZONE [Concomitant]
     Active Substance: PIOGLITAZONE
  15. POTASSIUM [Concomitant]
     Active Substance: POTASSIUM
  16. SILDENAFIL [Concomitant]
     Active Substance: SILDENAFIL
  17. TRAMADOL HCL [Concomitant]
     Active Substance: TRAMADOL HYDROCHLORIDE
  18. TRIAMCINOLONE [Concomitant]
     Active Substance: TRIAMCINOLONE
  19. ZOLPIDEM [Concomitant]
     Active Substance: ZOLPIDEM TARTRATE
  20. CREAM BASE CRE [Concomitant]

REACTIONS (2)
  - Taste disorder [Unknown]
  - Decreased appetite [Unknown]
